FAERS Safety Report 21076570 (Version 1)
Quarter: 2022Q3

REPORT INFORMATION
  Report Type: Report from Study
  Country: US (occurrence: US)
  Receive Date: 20220713
  Receipt Date: 20220713
  Transmission Date: 20221027
  Serious: Yes (Hospitalization)
  Sender: FDA-Public Use
  Company Number: US-GLAXOSMITHKLINE-US2022GSK102930

PATIENT

DRUGS (1)
  1. NIRAPARIB [Suspect]
     Active Substance: NIRAPARIB
     Indication: Pancreatic carcinoma metastatic
     Dosage: 200-300 MG, QD
     Route: 048
     Dates: start: 20220516

REACTIONS (1)
  - Embolism [Unknown]

NARRATIVE: CASE EVENT DATE: 20220701
